FAERS Safety Report 4422431-6 (Version None)
Quarter: 2004Q3

REPORT INFORMATION
  Report Type: 
  Country: None (occurrence: None)
  Receive Date: 20040806
  Receipt Date: 20040719
  Transmission Date: 20050211
  Serious: Yes (Other)
  Sender: FDA-Public Use
  Company Number: USA030948141

PATIENT
  Age: 81 Year
  Sex: Female
  Weight: 42 kg

DRUGS (2)
  1. HUMALOG [Suspect]
     Indication: DIABETES MELLITUS
     Dosage: 5 U/3 DAY
     Dates: start: 19930101
  2. HUMULIN N [Suspect]
     Indication: DIABETES MELLITUS
     Dosage: 22 U DAY
     Dates: start: 19930101

REACTIONS (8)
  - COUGH [None]
  - MULTIPLE ALLERGIES [None]
  - OSTEOPOROSIS [None]
  - OSTEOPOROTIC FRACTURE [None]
  - PHARMACEUTICAL PRODUCT COMPLAINT [None]
  - SNEEZING [None]
  - SPINAL FRACTURE [None]
  - WEIGHT DECREASED [None]
